FAERS Safety Report 6268694-6 (Version None)
Quarter: 2009Q3

REPORT INFORMATION
  Report Type: 
  Country: None (occurrence: None)
  Receive Date: 20090715
  Receipt Date: 20090707
  Transmission Date: 20100115
  Serious: Yes (Other)
  Sender: FDA-Public Use
  Company Number: US-JNJCH-2009013480

PATIENT
  Age: 63 Year
  Sex: Male
  Weight: 81.6 kg

DRUGS (2)
  1. VISINE EYE DROPS [Suspect]
     Indication: DRY EYE
     Dosage: TEXT:ONE DROP FIVE TIMES A DAY
     Route: 047
  2. DIOVAN [Concomitant]
     Indication: HYPERTENSION
     Dosage: TEXT:160 MG DAILY
     Route: 065

REACTIONS (5)
  - CHEMICAL EYE INJURY [None]
  - EYE PAIN [None]
  - MEDICATION ERROR [None]
  - OCULAR DISCOMFORT [None]
  - PRURITUS [None]
